FAERS Safety Report 7455598-6 (Version None)
Quarter: 2011Q2

REPORT INFORMATION
  Report Type: 
  Country: None (occurrence: None)
  Receive Date: 20110503
  Receipt Date: 20110427
  Transmission Date: 20111010
  Serious: Yes (Disabling, Other)
  Sender: FDA-Public Use
  Company Number: US-ROCHE-749441

PATIENT
  Sex: Female
  Weight: 81.6 kg

DRUGS (2)
  1. ACCUTANE [Suspect]
     Route: 065
     Dates: start: 19880501, end: 19880801
  2. ACCUTANE [Suspect]
     Indication: ACNE
     Route: 065
     Dates: start: 19840101, end: 19840901

REACTIONS (7)
  - INFLAMMATORY BOWEL DISEASE [None]
  - INTESTINAL HAEMORRHAGE [None]
  - INTESTINAL OBSTRUCTION [None]
  - DEPRESSION [None]
  - CROHN'S DISEASE [None]
  - GASTROINTESTINAL INJURY [None]
  - IRRITABLE BOWEL SYNDROME [None]
